FAERS Safety Report 23819652 (Version 1)
Quarter: 2024Q2

REPORT INFORMATION
  Report Type: Spontaneous
  Country: US (occurrence: None)
  Receive Date: 20240503
  Receipt Date: 20240503
  Transmission Date: 20240716
  Serious: No
  Sender: FDA-Public Use
  Company Number: None

PATIENT
  Age: 76 Year
  Sex: Male

DRUGS (15)
  1. AMBRISENTAN [Suspect]
     Active Substance: AMBRISENTAN
     Indication: Pulmonary hypertension
     Dosage: FREQUENCY : DAILY;?
     Route: 048
     Dates: start: 20240402
  2. SILDENAFIL [Concomitant]
  3. TORSEMIDE [Concomitant]
  4. GLIPIZIDE [Concomitant]
  5. METFORMIN [Concomitant]
  6. COLCHICINE [Concomitant]
  7. FLOMAX [Concomitant]
  8. POTASSIUM CHLORIDE [Concomitant]
  9. MAGNESIUM OXIDE [Concomitant]
  10. ALBUTEROL HFA [Concomitant]
  11. Levothyroxinem [Concomitant]
  12. Alvesco HFA [Concomitant]
  13. STIOLTO RESPIMAT [Concomitant]
  14. DUONEB [Concomitant]
  15. ASPIRIN [Concomitant]

REACTIONS (1)
  - Hospitalisation [None]

NARRATIVE: CASE EVENT DATE: 20240423
